FAERS Safety Report 5541634-0 (Version None)
Quarter: 2007Q4

REPORT INFORMATION
  Report Type: 
  Country: None (occurrence: None)
  Receive Date: 20071210
  Receipt Date: 20071206
  Transmission Date: 20080405
  Serious: Yes (Other)
  Sender: FDA-Public Use
  Company Number: A0633676A

PATIENT
  Age: 47 Year
  Sex: Male

DRUGS (4)
  1. NICORETTE [Suspect]
  2. NEXIUM [Concomitant]
  3. ROBINUL FORTE [Concomitant]
  4. SERTRALINE HCL [Concomitant]

REACTIONS (4)
  - BLOOD CREATININE INCREASED [None]
  - DEPENDENCE [None]
  - HAEMOGLOBIN INCREASED [None]
  - PHARMACEUTICAL PRODUCT COMPLAINT [None]
